APPROVED DRUG PRODUCT: PREDNISOLONE
Active Ingredient: PREDNISOLONE
Strength: 15MG/5ML
Dosage Form/Route: SOLUTION;ORAL
Application: A040323 | Product #001 | TE Code: AA
Applicant: CHARTWELL RX SCIENCES LLC
Approved: May 13, 1999 | RLD: No | RS: Yes | Type: RX